FAERS Safety Report 13780235 (Version 1)
Quarter: 2017Q3

REPORT INFORMATION
  Report Type: Other
  Country: US (occurrence: US)
  Receive Date: 20170724
  Receipt Date: 20170724
  Transmission Date: 20171127
  Serious: Yes (Other)
  Sender: FDA-Public Use
  Company Number: US-DEXPHARM-20171060

PATIENT
  Age: 68 Year
  Sex: Female

DRUGS (7)
  1. AMLODIPINE [Concomitant]
     Active Substance: AMLODIPINE BESYLATE
  2. ATORVASTATIN [Concomitant]
     Active Substance: ATORVASTATIN
  3. DULAGLUTIDE. [Concomitant]
     Active Substance: DULAGLUTIDE
     Indication: DIABETES MELLITUS
  4. OMEPRAZOLE. [Suspect]
     Active Substance: OMEPRAZOLE
  5. LEVETIRACETAM. [Concomitant]
     Active Substance: LEVETIRACETAM
  6. VITAMIN D [Concomitant]
     Active Substance: CHOLECALCIFEROL
  7. METFORMIN [Concomitant]
     Active Substance: METFORMIN HYDROCHLORIDE
     Indication: DIABETES MELLITUS

REACTIONS (2)
  - Hypomagnesaemia [Recovered/Resolved]
  - Hypocalcaemia [Recovered/Resolved]
